FAERS Safety Report 5879601-X (Version None)
Quarter: 2008Q3

REPORT INFORMATION
  Report Type: 
  Country: None (occurrence: None)
  Receive Date: 20080911
  Receipt Date: 20080911
  Transmission Date: 20090109
  Serious: No
  Sender: FDA-Public Use
  Company Number: None

PATIENT
  Sex: Male

DRUGS (2)
  1. HALDOL [Suspect]
     Dosage: 5 MG NOW PO
     Route: 048
     Dates: start: 20080601, end: 20080630
  2. PROLIXIN [Suspect]
     Dosage: 5 MG NOW PO
     Route: 048
     Dates: start: 20080601, end: 20080630

REACTIONS (2)
  - EXTRAPYRAMIDAL DISORDER [None]
  - LIVER FUNCTION TEST ABNORMAL [None]
